FAERS Safety Report 5693434-9 (Version None)
Quarter: 2008Q2

REPORT INFORMATION
  Report Type: 
  Country: None (occurrence: None)
  Receive Date: 20080403
  Receipt Date: 20080328
  Transmission Date: 20081010
  Serious: Yes (Other)
  Sender: FDA-Public Use
  Company Number: US-BAYER-200714681NA

PATIENT
  Sex: Female

DRUGS (1)
  1. MIRENA [Suspect]
     Indication: UNEVALUABLE EVENT
     Route: 015
     Dates: start: 20040625, end: 20040701

REACTIONS (3)
  - DRUG HYPERSENSITIVITY [None]
  - PELVIC PAIN [None]
  - VAGINAL DISCHARGE [None]
